FAERS Safety Report 13181738 (Version 17)
Quarter: 2019Q2

REPORT INFORMATION
  Report Type: Spontaneous
  Country: US (occurrence: US)
  Receive Date: 20170202
  Receipt Date: 20190628
  Transmission Date: 20190711
  Serious: Yes (Hospitalization)
  Sender: FDA-Public Use
  Company Number: US-ACTELION-A-NJ2016-142133

PATIENT
  Age: 37 Year
  Sex: Female
  Weight: 95.24 kg

DRUGS (5)
  1. VELETRI [Suspect]
     Active Substance: EPOPROSTENOL
     Dosage: 60 NG/KG, PER MIN
     Route: 042
  2. VELETRI [Suspect]
     Active Substance: EPOPROSTENOL
     Dosage: 46 NG/KG, PER MIN
     Route: 042
  3. ADEMPAS [Suspect]
     Active Substance: RIOCIGUAT
     Indication: PRODUCT USED FOR UNKNOWN INDICATION
     Dosage: UNK
     Route: 065
     Dates: start: 201807
  4. VELETRI [Suspect]
     Active Substance: EPOPROSTENOL
     Indication: PULMONARY ARTERIAL HYPERTENSION
     Dosage: 40 NG/KG, PER MIN
     Route: 042
     Dates: start: 20160531
  5. LETAIRIS [Concomitant]
     Active Substance: AMBRISENTAN

REACTIONS (23)
  - Gastric disorder [Unknown]
  - Device breakage [Unknown]
  - Device malfunction [Unknown]
  - Diarrhoea [Not Recovered/Not Resolved]
  - Unevaluable event [Unknown]
  - Dyspnoea [Unknown]
  - Fatigue [Unknown]
  - Hospitalisation [Unknown]
  - Atrial fibrillation [Unknown]
  - Malaise [Unknown]
  - Pain in jaw [Recovered/Resolved]
  - Gastrointestinal haemorrhage [Unknown]
  - Catheter site discharge [Unknown]
  - Flushing [Unknown]
  - Pain in extremity [Not Recovered/Not Resolved]
  - Catheter site pruritus [Unknown]
  - Pyrexia [Unknown]
  - Device connection issue [Unknown]
  - Venous injury [Unknown]
  - Catheter site infection [Unknown]
  - Skin irritation [Unknown]
  - Nasopharyngitis [Unknown]
  - Infection [Recovered/Resolved]

NARRATIVE: CASE EVENT DATE: 20161024
